FAERS Safety Report 6355702-7 (Version None)
Quarter: 2009Q3

REPORT INFORMATION
  Report Type: 
  Country: None (occurrence: None)
  Receive Date: 20090910
  Receipt Date: 20090902
  Transmission Date: 20100115
  Serious: Yes (Other)
  Sender: FDA-Public Use
  Company Number: 2009AL005573

PATIENT
  Age: 59 Year
  Sex: Female

DRUGS (8)
  1. FLUOXETINE [Suspect]
     Indication: DEPRESSION
     Dosage: 60 MG;BID;PO
     Route: 048
     Dates: start: 20080701, end: 20090701
  2. VISCOTEARS [Concomitant]
  3. FEXOFENADINE [Concomitant]
  4. LEVOTHYROXINE SODIUM [Concomitant]
  5. HYPROMELLOSE [Concomitant]
  6. LANSOPRAZOLE [Concomitant]
  7. MEBEVERINE [Concomitant]
  8. SUMATRIPTAN SUCCINATE [Concomitant]

REACTIONS (3)
  - AMNESIA [None]
  - DRUG DISPENSING ERROR [None]
  - TREMOR [None]
